FAERS Safety Report 17218464 (Version 1)
Quarter: 2019Q4

REPORT INFORMATION
  Report Type: Spontaneous
  Country: CA (occurrence: CA)
  Receive Date: 20191231
  Receipt Date: 20191231
  Transmission Date: 20200122
  Serious: Yes (Other)
  Sender: FDA-Public Use
  Company Number: CA-EMD SERONO-9048201

PATIENT
  Age: 44 Year
  Sex: Female
  Weight: 32.23 kg

DRUGS (2)
  1. OVIDREL [Suspect]
     Active Substance: CHORIOGONADOTROPIN ALFA
     Indication: ARTIFICIAL INSEMINATION
     Dosage: 1 PRE-FILLED PEN OF 250 MCG
     Route: 042
  2. FEMARA [Concomitant]
     Active Substance: LETROZOLE
     Indication: PRODUCT USED FOR UNKNOWN INDICATION

REACTIONS (1)
  - Ovarian cyst [Not Recovered/Not Resolved]
